FAERS Safety Report 4455945-3 (Version None)
Quarter: 2004Q3

REPORT INFORMATION
  Report Type: 
  Country: None (occurrence: None)
  Receive Date: 20040830
  Receipt Date: 20040521
  Transmission Date: 20050211
  Serious: No
  Sender: FDA-Public Use
  Company Number: 206080

PATIENT
  Age: 33 Year
  Sex: Male
  Weight: 83.9 kg

DRUGS (7)
  1. XOLAIR [Suspect]
     Indication: ASTHMA
     Dosage: 250 MG, Q2W, SUBCUTANEOUS
     Route: 058
     Dates: start: 20040308, end: 20040312
  2. PREDNISONE [Concomitant]
  3. THEOPHYLLINE [Concomitant]
  4. NORVASC [Concomitant]
  5. ZOCOR [Concomitant]
  6. ADVAIR DISKUS [Concomitant]
  7. ALBUTEROL (ALBUTEROL, ALBUTEROL SULFATE) [Concomitant]

REACTIONS (1)
  - DERMATITIS [None]
